FAERS Safety Report 5874860-1 (Version None)
Quarter: 2008Q3

REPORT INFORMATION
  Report Type: 
  Country: None (occurrence: None)
  Receive Date: 20080908
  Receipt Date: 20080908
  Transmission Date: 20090109
  Serious: Yes (Life-Threatening, Hospitalization)
  Sender: FDA-Public Use
  Company Number: None

PATIENT
  Sex: Male
  Weight: 36.2878 kg

DRUGS (2)
  1. MARAVIROC [Suspect]
     Indication: ACQUIRED IMMUNODEFICIENCY SYNDROME
     Dosage: 300MG PO BID
     Route: 048
     Dates: start: 20080301, end: 20080801
  2. MARAVIROC [Suspect]
     Indication: MULTIPLE-DRUG RESISTANCE
     Dosage: 300MG PO BID
     Route: 048
     Dates: start: 20080301, end: 20080801

REACTIONS (1)
  - LYMPHOMA [None]
